FAERS Safety Report 12162421 (Version 2)
Quarter: 2016Q2

REPORT INFORMATION
  Report Type: Spontaneous
  Country: NL (occurrence: NL)
  Receive Date: 20160309
  Receipt Date: 20160419
  Transmission Date: 20160815
  Serious: Yes (Other)
  Sender: FDA-Public Use
  Company Number: NL-AUROBINDO-AUR-APL-2016-02446

PATIENT
  Age: 45 Year
  Sex: Female

DRUGS (8)
  1. AZATHIOPRINE 50MG [Interacting]
     Active Substance: AZATHIOPRINE
     Dosage: 100 MG, UNK
     Route: 065
  2. PANTOPRAZOLE 20MG [Suspect]
     Active Substance: PANTOPRAZOLE SODIUM
     Indication: PRODUCT USED FOR UNKNOWN INDICATION
     Dosage: 20 MG, UNK
     Route: 065
  3. AZATHIOPRINE 50MG [Interacting]
     Active Substance: AZATHIOPRINE
     Dosage: 150 MG, UNK
     Route: 065
  4. AZATHIOPRINE 50MG [Interacting]
     Active Substance: AZATHIOPRINE
     Indication: DYSHIDROTIC ECZEMA
     Dosage: 50 MG, UNK
     Route: 065
  5. AZATHIOPRINE 50MG [Interacting]
     Active Substance: AZATHIOPRINE
     Indication: DERMATITIS ATOPIC
     Dosage: 100 MG, UNK
     Route: 065
  6. AZATHIOPRINE 50MG [Interacting]
     Active Substance: AZATHIOPRINE
     Dosage: 150 MG, UNK
     Route: 065
  7. PREDNISOLONE. [Concomitant]
     Active Substance: PREDNISOLONE
     Indication: PRODUCT USED FOR UNKNOWN INDICATION
     Dosage: UNK, 20?30 MG PER DAY IN A TAPERING DOSE
     Route: 048
  8. AZATHIOPRINE 50MG [Interacting]
     Active Substance: AZATHIOPRINE
     Dosage: 50 MG, UNK
     Route: 065

REACTIONS (4)
  - Gastrointestinal disorder [Recovered/Resolved]
  - Liver injury [Recovered/Resolved]
  - Off label use [Recovered/Resolved]
  - Drug interaction [Recovered/Resolved]
